FAERS Safety Report 25311935 (Version 2)
Quarter: 2025Q2

REPORT INFORMATION
  Report Type: Spontaneous
  Country: BE (occurrence: None)
  Receive Date: 20250514
  Receipt Date: 20250604
  Transmission Date: 20250717
  Serious: Yes (Death)
  Sender: INCYTE
  Company Number: BE-002147023-NVSC2025BE076598

PATIENT

DRUGS (2)
  1. RUXOLITINIB [Suspect]
     Active Substance: RUXOLITINIB
     Indication: Graft versus host disease
     Dosage: 10 MG, BID
     Route: 065
  2. CEFTRIAXONE [Concomitant]
     Active Substance: CEFTRIAXONE
     Indication: Pseudomonas infection
     Route: 065

REACTIONS (4)
  - Infection [Fatal]
  - Post transplant lymphoproliferative disorder [Fatal]
  - Disease progression [Fatal]
  - Graft versus host disease in gastrointestinal tract [Fatal]
